FAERS Safety Report 6657139 (Version 16)
Quarter: 2015Q1

REPORT INFORMATION
  Report Type: Report from Study
  Country: CA (occurrence: CA)
  Receive Date: 20080604
  Receipt Date: 20150327
  Transmission Date: 20150721
  Serious: Yes (Hospitalization, Other)
  Sender: FDA-Public Use
  Company Number: CA-ROCHE-GNE261591

PATIENT
  Age: 59 Year
  Sex: Male
  Weight: 80 kg

DRUGS (6)
  1. OMALIZUMAB [Suspect]
     Active Substance: OMALIZUMAB
     Route: 058
     Dates: start: 20061127
  2. OMALIZUMAB [Suspect]
     Active Substance: OMALIZUMAB
     Route: 058
     Dates: start: 20140626
  3. OMALIZUMAB [Suspect]
     Active Substance: OMALIZUMAB
     Route: 058
     Dates: start: 20130206
  4. OMALIZUMAB [Suspect]
     Active Substance: OMALIZUMAB
     Route: 058
     Dates: start: 20141126
  5. OMALIZUMAB [Suspect]
     Active Substance: OMALIZUMAB
     Indication: ASTHMA
     Route: 058
     Dates: start: 20060101
  6. OMALIZUMAB [Suspect]
     Active Substance: OMALIZUMAB
     Route: 058

REACTIONS (12)
  - Nasal polyps [Unknown]
  - Asthma [Not Recovered/Not Resolved]
  - Sinusitis [Unknown]
  - Arrhythmia [Unknown]
  - Dyspnoea [Unknown]
  - Pneumonia [Unknown]
  - Nasal congestion [Unknown]
  - Hypersensitivity [Not Recovered/Not Resolved]
  - Pharyngitis streptococcal [Unknown]
  - Urinary tract infection [Unknown]
  - Blood pressure increased [Recovered/Resolved]
  - Chest discomfort [Unknown]

NARRATIVE: CASE EVENT DATE: 20120208
